FAERS Safety Report 15139730 (Version 3)
Quarter: 2018Q4

REPORT INFORMATION
  Report Type: Spontaneous
  Country: DE (occurrence: DE)
  Receive Date: 20180713
  Receipt Date: 20181010
  Transmission Date: 20190204
  Serious: Yes (Death, Other)
  Sender: FDA-Public Use
  Company Number: DE-AUROBINDO-AUR-APL-2013-04560

PATIENT
  Age: 40 Year
  Sex: Female
  Weight: 47 kg

DRUGS (20)
  1. LAMOTRIGINE AUROBINDO TABLETS 100MG [Suspect]
     Active Substance: LAMOTRIGINE
     Indication: PRODUCT USED FOR UNKNOWN INDICATION
     Dosage: 100MG, (1? IN MORNING AND 2 IN EVENING; PERIOD: WEEK 3)
     Route: 065
  2. CITALOPRAM [Suspect]
     Active Substance: CITALOPRAM HYDROBROMIDE
     Indication: PRODUCT USED FOR UNKNOWN INDICATION
     Dosage: UNK
     Route: 065
  3. KEPPRA [Suspect]
     Active Substance: LEVETIRACETAM
     Indication: SUICIDE ATTEMPT
     Dosage: 1000 MG, ONE AND HALF A TABLET IN THE MORNING, ONE AND HALF A TABLET IN THE EVENING
     Route: 065
  4. VALDOXAN [Suspect]
     Active Substance: AGOMELATINE
     Dosage: 98 TABLETS; 25 MG
     Route: 065
  5. LORAZEPAM. [Suspect]
     Active Substance: LORAZEPAM
     Indication: PRODUCT USED FOR UNKNOWN INDICATION
     Dosage: 1 UNK, 1 AS NECESSARY, AS NEEDED (PRN)
     Route: 065
  6. CIPRAMIL                           /00582602/ [Suspect]
     Active Substance: CITALOPRAM HYDROBROMIDE
     Indication: SUICIDE ATTEMPT
     Dosage: UNK
     Route: 065
  7. LAMOTRIGINE AUROBINDO TABLETS 100MG [Suspect]
     Active Substance: LAMOTRIGINE
     Dosage: ONE TABLET IN THE MORNING, TWO TABLETS IN THE EVENING
     Route: 065
  8. LAMOTRIGINE AUROBINDO TABLETS 100MG [Suspect]
     Active Substance: LAMOTRIGINE
     Dosage: DAILY DOSE: 400 MG MILLIGRAM(S) EVERY DAY
     Route: 065
  9. LAMOTRIGINE AUROBINDO TABLETS 100MG [Suspect]
     Active Substance: LAMOTRIGINE
     Dosage: ONE AND HALF A TABLET IN THE MORNING, TWO TABLETS IN THE EVENING
     Route: 065
  10. VALDOXAN [Suspect]
     Active Substance: AGOMELATINE
     Dosage: DAILY DOSE: 50 MG MILLIGRAM(S) EVERY DAY  UNK
     Route: 065
  11. KEPPRA [Suspect]
     Active Substance: LEVETIRACETAM
     Indication: EPILEPSY
     Dosage: 1000 MG, ONE AND HALF A TABLET IN THE MORNING, ONE AND HALF A TABLET IN THE EVENING
     Route: 065
  12. VIMPAT [Suspect]
     Active Substance: LACOSAMIDE
     Indication: PRODUCT USED FOR UNKNOWN INDICATION
     Dosage: 100 MG-168 TABLETS, IN THE MORNING AND 1 AND A HALF IN THE EVENING
     Route: 065
  13. DIAMOX                             /00016901/ [Suspect]
     Active Substance: ACETAZOLAMIDE
     Indication: PRODUCT USED FOR UNKNOWN INDICATION
     Dosage: UNK UNK,UNK,,1 DOSAGE FORM MORNING AND 1 IN EVENING
     Route: 065
  14. LAMOTRIGINE AUROBINDO TABLETS 100MG [Suspect]
     Active Substance: LAMOTRIGINE
     Dosage: 100MG, (1 IN MORNING AND 1? IN EVENING; PERIOD: WEEK 1)
     Route: 065
  15. CLONAZEPAM. [Suspect]
     Active Substance: CLONAZEPAM
     Indication: PRODUCT USED FOR UNKNOWN INDICATION
     Dosage: UNK
     Route: 065
  16. CLOBAZAM. [Suspect]
     Active Substance: CLOBAZAM
     Indication: SUICIDE ATTEMPT
     Dosage: UNK
     Route: 048
  17. DIAMOX                             /00016901/ [Suspect]
     Active Substance: ACETAZOLAMIDE
     Dosage: DAILY DOSE: 1 DF DOSAGE FORM EVERY DAY
  18. VALDOXAN [Suspect]
     Active Substance: AGOMELATINE
     Indication: PRODUCT USED FOR UNKNOWN INDICATION
     Dosage: UNK UNK,UNK,,2 DOSAGE FORMS IN EVENING
     Route: 065
  19. VIMPAT [Suspect]
     Active Substance: LACOSAMIDE
     Dosage: ONE TABLET IN THE MORNING, ONE AND HALF A TABLET IN THE EVENING
     Route: 065
  20. DIAMOX                             /00016901/ [Suspect]
     Active Substance: ACETAZOLAMIDE
     Dosage: DAILY DOSE: 2 DF DOSAGE FORM EVERY DAY
     Route: 065

REACTIONS (5)
  - Overdose [Fatal]
  - Death [Fatal]
  - Poisoning [Fatal]
  - Toxicity to various agents [Fatal]
  - Completed suicide [Fatal]
